FAERS Safety Report 7843623 (Version 2)
Quarter: 2013Q3

REPORT INFORMATION
  Report Type: Report from Study
  Country: IT (occurrence: IT)
  Receive Date: 20110307
  Receipt Date: 20130726
  Transmission Date: 20140515
  Serious: Yes (Other)
  Sender: FDA-Public Use
  Company Number: IT-ROCHE-762847

PATIENT
  Age: 79 Year
  Sex: Male

DRUGS (3)
  1. CAPECITABINE [Suspect]
     Indication: GASTRIC CANCER
     Dosage: LEVEL II (DAYS 2-15, EVERY 3 WEEKS)
     Route: 048
  2. DOCETAXEL [Suspect]
     Indication: GASTRIC CANCER
     Dosage: LEVEL II (DAY 1, 8)
     Route: 042
  3. OXALIPLATIN [Suspect]
     Indication: GASTRIC CANCER
     Dosage: LEVEL II (DAY 1,8)
     Route: 042

REACTIONS (3)
  - Bronchopneumonia [Unknown]
  - Thrombocytopenia [Unknown]
  - Neutropenia [Unknown]
